FAERS Safety Report 13068593 (Version 1)
Quarter: 2016Q4

REPORT INFORMATION
  Report Type: Spontaneous
  Country: US (occurrence: US)
  Receive Date: 20161228
  Receipt Date: 20161228
  Transmission Date: 20170207
  Serious: Yes (Other)
  Sender: FDA-Public Use
  Company Number: US-ABBVIE-16P-163-1822984-00

PATIENT
  Age: 78 Year
  Sex: Female

DRUGS (4)
  1. SODIUM VALPROATE [Suspect]
     Active Substance: VALPROATE SODIUM
     Indication: SEIZURE
     Route: 042
  2. SODIUM VALPROATE [Interacting]
     Active Substance: VALPROATE SODIUM
     Route: 065
  3. LAMOTRIGINE. [Interacting]
     Active Substance: LAMOTRIGINE
     Indication: STATUS EPILEPTICUS
     Route: 065
  4. LEVETIRACETAM. [Suspect]
     Active Substance: LEVETIRACETAM
     Indication: SEIZURE
     Route: 065

REACTIONS (4)
  - Balance disorder [Recovered/Resolved]
  - Drug interaction [Recovered/Resolved]
  - Vision blurred [Recovered/Resolved]
  - Seizure [Recovered/Resolved]
